FAERS Safety Report 23241575 (Version 2)
Quarter: 2024Q2

REPORT INFORMATION
  Report Type: Spontaneous
  Country: NZ (occurrence: NZ)
  Receive Date: 20231129
  Receipt Date: 20240429
  Transmission Date: 20240715
  Serious: Yes (Death)
  Sender: FDA-Public Use
  Company Number: NZ-MYLANLABS-2023M1125210

PATIENT
  Age: 52 Year
  Sex: Female
  Weight: 97 kg

DRUGS (18)
  1. CLOZARIL [Suspect]
     Active Substance: CLOZAPINE
     Indication: Schizophrenia
     Dosage: UNK
     Route: 048
     Dates: start: 20041105
  2. CLOZARIL [Suspect]
     Active Substance: CLOZAPINE
     Dosage: 300 MILLIGRAM, QD (AT NIGHT, BLISTER)
     Route: 048
  3. CLOZARIL [Suspect]
     Active Substance: CLOZAPINE
     Dosage: 325 MILLIGRAM, QD (AT NIGHT, BLISTER PACK)
     Route: 048
     Dates: start: 20230822
  4. ATORVASTATIN [Concomitant]
     Active Substance: ATORVASTATIN
     Dosage: 1 DOSAGE FORM, QD ONCE DAILY (WEEKLY COLLECTION 30)
     Route: 065
     Dates: start: 20231017
  5. ESCITALOPRAM [Concomitant]
     Active Substance: ESCITALOPRAM OXALATE
     Dosage: 1 DOSAGE FORM, QD (ONCE DAILY, WEEKLY COLLECT BLISTER PACKS 7)
     Route: 065
     Dates: start: 20231017
  6. AMISULPRIDE [Concomitant]
     Active Substance: AMISULPRIDE
     Dosage: 1 DOSAGE FORM, BID (TWICE DAILY BLISTER PACKS WEEKLY COLLECT 14)
     Route: 065
     Dates: start: 20231017
  7. CLONAZEPAM [Concomitant]
     Active Substance: CLONAZEPAM
     Dosage: 1 DOSAGE FORM, TID (THRICE DAILY, 1 MORNING, 1 AFTERNOON, 1 AT NIGHT 90)
     Route: 065
     Dates: start: 20231017
  8. OMEPRAZOLE [Concomitant]
     Active Substance: OMEPRAZOLE
     Indication: Reflux gastritis
     Dosage: 1 DOSAGE FORM, QD (ONCE DAILY 90)
     Route: 065
     Dates: start: 20231017
  9. BENZTROPINE [Concomitant]
     Active Substance: BENZTROPINE
     Dosage: 1 DOSAGE FORM, BID (TWICE DAILY WEEKLY COLLECT BLISTER PACKS 14)
     Route: 065
     Dates: start: 20231017
  10. EPILIM [Concomitant]
     Active Substance: VALPROATE SODIUM
     Dosage: 2 DOSAGE FORM, BID (TWICE DAILY BLISTER PACKS WEEKLY COLLECT 28)
     Route: 065
     Dates: start: 20231017
  11. MIRTAZAPINE [Concomitant]
     Active Substance: MIRTAZAPINE
     Dosage: 1 DOSAGE FORM, QD (ONCE AT BEDTIME 7)
     Route: 065
     Dates: start: 20231017
  12. ZOPICLONE [Concomitant]
     Active Substance: ZOPICLONE
     Dosage: 1 DOSAGE FORM, QD (ONCE AT NIGHT 7)
     Route: 065
     Dates: start: 20231017
  13. BUDESONIDE\FORMOTEROL FUMARATE DIHYDRATE [Concomitant]
     Active Substance: BUDESONIDE\FORMOTEROL FUMARATE DIHYDRATE
     Dosage: 120 DOSAGE FORM, BID (METERED DOSE 2 PUFFS, PRN AS NEEDED FOR ASTHMA 3)
     Route: 055
     Dates: start: 20231017
  14. SENNOSIDES [Concomitant]
     Active Substance: SENNOSIDES
     Dosage: UNK
     Route: 065
     Dates: start: 20231017
  15. DOCUSATE SODIUM [Concomitant]
     Active Substance: DOCUSATE SODIUM
     Dosage: 2 DOSAGE FORM, QD (ONCE AT NIGHT BLISTER PACK 60)
     Route: 065
     Dates: start: 20231017
  16. EMPAGLIFLOZIN [Concomitant]
     Active Substance: EMPAGLIFLOZIN
     Dosage: UNK
     Route: 065
     Dates: start: 20231017
  17. METFORMIN HYDROCHLORIDE [Concomitant]
     Active Substance: METFORMIN HYDROCHLORIDE
     Dosage: 1 DOSAGE FORM, BID (TWICE DAILY 60)
     Route: 065
     Dates: start: 20231017
  18. LISINOPRIL [Concomitant]
     Active Substance: LISINOPRIL
     Dosage: 2 DOSAGE FORM, QD (BLISTER PACKS 60)
     Route: 065
     Dates: start: 20231017

REACTIONS (5)
  - Death [Fatal]
  - Upper respiratory tract infection [Unknown]
  - Inadequate diet [Unknown]
  - Arthralgia [Unknown]
  - Constipation [Unknown]

NARRATIVE: CASE EVENT DATE: 20231001
